FAERS Safety Report 15112099 (Version 1)
Quarter: 2018Q3

REPORT INFORMATION
  Report Type: Report from Study
  Country: CN (occurrence: CN)
  Receive Date: 20180705
  Receipt Date: 20180705
  Transmission Date: 20181010
  Serious: Yes (Other)
  Sender: FDA-Public Use
  Company Number: CN-GUERBET-CN-20180021

PATIENT
  Age: 70 Year
  Sex: Male

DRUGS (6)
  1. DOXORUBICIN HYDROCHLORIDE. [Concomitant]
     Active Substance: DOXORUBICIN HYDROCHLORIDE
     Indication: TRANSCATHETER ARTERIAL CHEMOEMBOLISATION
     Dosage: 20?60 MG
     Route: 013
  2. LIDOCAINE 2% [Concomitant]
     Active Substance: LIDOCAINE
     Indication: LOCAL ANAESTHESIA
     Dosage: 10?15 ML
     Route: 065
  3. MEPERIDINE [Concomitant]
     Active Substance: MEPERIDINE
     Indication: ANALGESIC THERAPY
     Dosage: 50?100 MG
     Route: 065
  4. LIPIODOL [Suspect]
     Active Substance: ETHIODIZED OIL
     Indication: TRANSCATHETER ARTERIAL CHEMOEMBOLISATION
     Dosage: BETWEEN 5?20 ML
     Route: 013
  5. LOBAPLATIN [Concomitant]
     Active Substance: LOBAPLATIN
     Indication: TRANSCATHETER ARTERIAL CHEMOEMBOLISATION
     Dosage: BETWEEN 20?50 MG ACCORDING TO THE PATIENT^S WEIGHT
     Route: 013
  6. POLYVINYL ALCOHOL [Concomitant]
     Active Substance: POLYVINYL ALCOHOL
     Indication: TRANSCATHETER ARTERIAL CHEMOEMBOLISATION
     Route: 013

REACTIONS (2)
  - Left ventricular failure [Unknown]
  - Product use in unapproved indication [Unknown]
